FAERS Safety Report 24253994 (Version 1)
Quarter: 2024Q3

REPORT INFORMATION
  Report Type: Spontaneous
  Country: ES (occurrence: ES)
  Receive Date: 20240827
  Receipt Date: 20240827
  Transmission Date: 20241017
  Serious: Yes (Hospitalization)
  Sender: FRESENIUS KABI
  Company Number: None

PATIENT
  Age: 73 Year
  Sex: Male

DRUGS (8)
  1. PIPERACILLIN AND TAZOBACTAM [Suspect]
     Active Substance: PIPERACILLIN SODIUM\TAZOBACTAM SODIUM
     Indication: Product used for unknown indication
     Route: 042
     Dates: start: 20240604
  2. CEFEPIME [Suspect]
     Active Substance: CEFEPIME HYDROCHLORIDE
     Indication: Product used for unknown indication
     Route: 042
     Dates: start: 20240607, end: 20240612
  3. ENOXAPARIN (2482A) [Concomitant]
     Indication: Thrombosis prophylaxis
     Route: 058
     Dates: start: 20240604
  4. ASPIRIN [Concomitant]
     Active Substance: ASPIRIN
     Indication: Thrombosis prophylaxis
     Route: 048
     Dates: start: 20240530
  5. CLOPIDOGREL [Concomitant]
     Active Substance: CLOPIDOGREL BISULFATE
     Indication: Mitral valve replacement
     Route: 048
     Dates: start: 20240530
  6. NOVORAPID FLEXPEN 100 U/ML SOLUTION FOR INJECTION IN A PRE-FILLED PEN [Concomitant]
     Indication: Diabetes mellitus
     Route: 058
     Dates: start: 20240610
  7. OMEPRAZOLE SODIUM [Concomitant]
     Active Substance: OMEPRAZOLE SODIUM
     Indication: Prophylaxis against gastrointestinal ulcer
     Route: 065
     Dates: start: 20240603
  8. INSULIN GLARGINE (1165A) [Concomitant]
     Indication: Diabetes mellitus
     Route: 058
     Dates: start: 20240610

REACTIONS (2)
  - Metabolic encephalopathy [Recovered/Resolved]
  - Toxic encephalopathy [Recovered/Resolved]

NARRATIVE: CASE EVENT DATE: 20240611
